FAERS Safety Report 14046838 (Version 1)
Quarter: 2017Q4

REPORT INFORMATION
  Report Type: Other
  Country: FI (occurrence: FI)
  Receive Date: 20171005
  Receipt Date: 20171005
  Transmission Date: 20180321
  Serious: Yes (Hospitalization)
  Sender: FDA-Public Use
  Company Number: FI-CELLTRION INC.-2017FI013450

PATIENT

DRUGS (11)
  1. VAGIFEM [Concomitant]
     Active Substance: ESTRADIOL
     Indication: ATROPHIC VULVOVAGINITIS
  2. INFLECTRA [Suspect]
     Active Substance: INFLIXIMAB-DYYB
     Indication: PRODUCT USED FOR UNKNOWN INDICATION
     Dosage: 200 MG, UNK
     Route: 042
     Dates: start: 20170810, end: 20170828
  3. CALCICHEW D3 FORTE [Concomitant]
     Active Substance: CALCIUM\CHOLECALCIFEROL
     Indication: OSTEOPOROSIS
     Dosage: 2 DF, DAILY
  4. OMEPRAZOL RATIOPHARM [Concomitant]
     Active Substance: OMEPRAZOLE
     Indication: GASTROOESOPHAGEAL REFLUX DISEASE
     Dosage: 20 MG, DAILY
  5. TREXAN                             /00113801/ [Concomitant]
     Active Substance: METHOTREXATE SODIUM
     Indication: RHEUMATOID ARTHRITIS
     Dosage: 12.5 MG, 1/WEEK
  6. NAPROMETIN [Concomitant]
     Indication: PAIN
     Dosage: 500 MG,AS NEEDED
  7. OPTINATE SEPTIMUM [Concomitant]
     Active Substance: RISEDRONATE SODIUM
     Indication: OSTEOPOROSIS
     Dosage: 35 MG, 1/WEEK
  8. FOLIC ACID. [Concomitant]
     Active Substance: FOLIC ACID
     Indication: RHEUMATOID ARTHRITIS
     Dosage: 5 MG, UNK
  9. PREDNISOLON                        /00016201/ [Concomitant]
     Active Substance: PREDNISOLONE
     Indication: RHEUMATOID ARTHRITIS
  10. BURANA [Concomitant]
     Active Substance: IBUPROFEN
     Indication: PAIN
  11. PANADOL FORTE                      /00020001/ [Concomitant]
     Indication: PAIN

REACTIONS (3)
  - Oxygen saturation decreased [Recovered/Resolved]
  - Hypersensitivity [Recovered/Resolved]
  - Tachycardia [Recovered/Resolved]

NARRATIVE: CASE EVENT DATE: 20170828
